FAERS Safety Report 5377552-0 (Version None)
Quarter: 2007Q3

REPORT INFORMATION
  Report Type: 
  Country: None (occurrence: None)
  Receive Date: 20070703
  Receipt Date: 20070620
  Transmission Date: 20080115
  Serious: Yes (Hospitalization)
  Sender: FDA-Public Use
  Company Number: NL-AMGEN-UK230790

PATIENT
  Sex: Male
  Weight: 80 kg

DRUGS (1)
  1. NEUPOGEN [Suspect]
     Indication: PERIPHERAL BLOOD STEM CELL APHERESIS
     Route: 065
     Dates: start: 20070601, end: 20070604

REACTIONS (1)
  - TRANSIENT ISCHAEMIC ATTACK [None]
